FAERS Safety Report 10538136 (Version 2)
Quarter: 2014Q4

REPORT INFORMATION
  Report Type: Spontaneous
  Country: JP (occurrence: JP)
  Receive Date: 20141023
  Receipt Date: 20141030
  Transmission Date: 20150529
  Serious: Yes (Other)
  Sender: FDA-Public Use
  Company Number: JP-PFIZER INC-2014289668

PATIENT
  Age: 73 Year
  Sex: Female

DRUGS (6)
  1. BLOPRESS [Suspect]
     Active Substance: CANDESARTAN CILEXETIL
     Dosage: UNK
     Route: 048
  2. METHYCOBAL [Suspect]
     Active Substance: METHYLCOBALAMIN
     Dosage: 500 MG, 3X/DAY
     Route: 048
  3. LYRICA [Suspect]
     Active Substance: PREGABALIN
     Dosage: 25 MG, 2X/DAY, IN THE MORNING AND BEFORE SLEEP
     Route: 048
     Dates: start: 20140813, end: 2014
  4. MOHRUS [Suspect]
     Active Substance: KETOPROFEN
     Dosage: 40 MG, 1X/DAY
     Route: 003
  5. NAUZELIN [Suspect]
     Active Substance: DOMPERIDONE
     Dosage: UNK
     Route: 048
  6. TRAMCET [Suspect]
     Active Substance: ACETAMINOPHEN\TRAMADOL
     Dosage: UNK
     Route: 048

REACTIONS (3)
  - Haemorrhage [Recovered/Resolved]
  - Pruritus [Unknown]
  - Feeling abnormal [Unknown]

NARRATIVE: CASE EVENT DATE: 20140820
